FAERS Safety Report 15571231 (Version 1)
Quarter: 2018Q4

REPORT INFORMATION
  Report Type: Spontaneous
  Country: US (occurrence: US)
  Receive Date: 20181031
  Receipt Date: 20181031
  Transmission Date: 20190205
  Serious: No
  Sender: FDA-Public Use
  Company Number: None

PATIENT
  Sex: Male

DRUGS (2)
  1. AFINITOR [Suspect]
     Active Substance: EVEROLIMUS
  2. NIVOLUMAB [Suspect]
     Active Substance: NIVOLUMAB

REACTIONS (6)
  - Tremor [None]
  - Liver disorder [None]
  - Impaired healing [None]
  - Treatment failure [None]
  - Wound [None]
  - Disease progression [None]
